FAERS Safety Report 5345662-X (Version None)
Quarter: 2007Q2

REPORT INFORMATION
  Report Type: 
  Country: None (occurrence: None)
  Receive Date: 20070424
  Receipt Date: 20061120
  Transmission Date: 20071010
  Serious: Yes (Other)
  Sender: FDA-Public Use
  Company Number: TEST00206003770

PATIENT
  Age: 73 Year
  Sex: Male
  Weight: 71.5 kg

DRUGS (4)
  1. ANDROGEL [Suspect]
     Indication: BLOOD TESTOSTERONE DECREASED
     Dosage: 5 GRAM(S) QD TRANSCUTANEOUS DAILY DOSE: 5 GRAM(S)
     Dates: start: 20030101, end: 20060901
  2. PROTONIX [Concomitant]
  3. SYNTHROID [Concomitant]
  4. BENAZEPRIL/HCTZ (BENAZEPRIL/HCTZ) [Concomitant]

REACTIONS (1)
  - PROSTATE CANCER [None]
